FAERS Safety Report 22282249 (Version 1)
Quarter: 2023Q2

REPORT INFORMATION
  Report Type: Report from Study
  Country: US (occurrence: US)
  Receive Date: 20230504
  Receipt Date: 20230504
  Transmission Date: 20230722
  Serious: No
  Sender: FDA-Public Use
  Company Number: US-BIOVITRUM-2023US00904

PATIENT
  Age: 13 Year
  Sex: Female

DRUGS (2)
  1. KINERET [Suspect]
     Active Substance: ANAKINRA
     Indication: Still^s disease
     Dosage: FREQUENCY EVERY 12 HOURLY
     Dates: start: 20221214
  2. KINERET [Suspect]
     Active Substance: ANAKINRA
     Dosage: FREQUENCY FOUR TIMES A DAY
     Route: 058
     Dates: start: 20221214

REACTIONS (9)
  - Intentional product misuse [Not Recovered/Not Resolved]
  - Product dose omission issue [Unknown]
  - Drug ineffective [Unknown]
  - Serum ferritin increased [Not Recovered/Not Resolved]
  - Pruritus [Unknown]
  - Rash [Unknown]
  - Laboratory test abnormal [Not Recovered/Not Resolved]
  - Alanine aminotransferase decreased [Not Recovered/Not Resolved]
  - Aspartate aminotransferase decreased [Not Recovered/Not Resolved]

NARRATIVE: CASE EVENT DATE: 20221214
